FAERS Safety Report 21221646 (Version 1)
Quarter: 2022Q3

REPORT INFORMATION
  Report Type: Spontaneous
  Country: US (occurrence: None)
  Receive Date: 20220817
  Receipt Date: 20220817
  Transmission Date: 20221027
  Serious: Yes (Other)
  Sender: FDA-Public Use
  Company Number: None

PATIENT
  Age: 69 Year
  Sex: Female
  Weight: 52.65 kg

DRUGS (3)
  1. REPATHA [Suspect]
     Active Substance: EVOLOCUMAB
     Indication: Blood cholesterol increased
     Dosage: OTHER FREQUENCY : 2 TIMES A MONTH;?OTHER ROUTE : INJECTION;?
     Route: 050
     Dates: start: 20180830, end: 20220424
  2. Fargxia [Concomitant]
  3. ZIAC [Concomitant]
     Active Substance: BISOPROLOL FUMARATE\HYDROCHLOROTHIAZIDE

REACTIONS (2)
  - Diverticulitis [None]
  - Colitis [None]

NARRATIVE: CASE EVENT DATE: 20220424
